FAERS Safety Report 9912982 (Version 1)
Quarter: 2014Q1

REPORT INFORMATION
  Report Type: Spontaneous
  Country: DE (occurrence: None)
  Receive Date: 20140214
  Receipt Date: 20140214
  Transmission Date: 20141002
  Serious: Yes (Other)
  Sender: FDA-Public Use
  Company Number: FK201400466

PATIENT
  Age: 1 Day
  Sex: Male
  Weight: 1.8 kg

DRUGS (3)
  1. CARBOPLATIN (CARBOPLATIN) [Suspect]
     Indication: PRODUCT USED FOR UNKNOWN INDICATION
     Route: 064
     Dates: start: 20090902, end: 20091215
  2. DOCETAXEL (DOCETAXEL) [Suspect]
     Indication: PRODUCT USED FOR UNKNOWN INDICATION
     Route: 064
     Dates: start: 20090902, end: 20091215
  3. HERCEPTIN (TRASTUZUMAB) [Suspect]
     Indication: PRODUCT USED FOR UNKNOWN INDICATION
     Route: 064
     Dates: start: 20090902, end: 20090922

REACTIONS (9)
  - Atrial septal defect [None]
  - Pulmonary artery stenosis congenital [None]
  - Foetal growth restriction [None]
  - Patent ductus arteriosus [None]
  - Thrombocytopenia neonatal [None]
  - Oligohydramnios [None]
  - Caesarean section [None]
  - Small for dates baby [None]
  - Maternal drugs affecting foetus [None]
